FAERS Safety Report 13377443 (Version 1)
Quarter: 2017Q1

REPORT INFORMATION
  Report Type: Spontaneous
  Country: AR (occurrence: AR)
  Receive Date: 20170328
  Receipt Date: 20170328
  Transmission Date: 20170429
  Serious: Yes (Hospitalization, Other)
  Sender: FDA-Public Use
  Company Number: AR-GLAXOSMITHKLINE-AR2017GSK038678

PATIENT
  Age: 14 Year
  Sex: Female

DRUGS (2)
  1. PENICILLIN [Suspect]
     Active Substance: PENICILLIN
     Indication: PRODUCT USED FOR UNKNOWN INDICATION
  2. LAMICTAL [Suspect]
     Active Substance: LAMOTRIGINE
     Indication: SEIZURE
     Dosage: 25 MG, QD

REACTIONS (15)
  - Feeding disorder [Unknown]
  - Tonsillolith [Recovering/Resolving]
  - Glossitis [Recovering/Resolving]
  - Pharyngeal exudate [Unknown]
  - Streptococcal infection [Unknown]
  - Stevens-Johnson syndrome [Unknown]
  - Lymphadenopathy [Unknown]
  - Pyrexia [Recovering/Resolving]
  - Eye oedema [Recovering/Resolving]
  - Lip oedema [Recovering/Resolving]
  - Odynophagia [Recovering/Resolving]
  - Neck pain [Recovering/Resolving]
  - Rash vesicular [Recovering/Resolving]
  - Skin reaction [Unknown]
  - Salivary gland pain [Recovering/Resolving]
